FAERS Safety Report 10971726 (Version 3)
Quarter: 2015Q2

REPORT INFORMATION
  Report Type: Spontaneous
  Country: FR (occurrence: FR)
  Receive Date: 20150331
  Receipt Date: 20150430
  Transmission Date: 20150821
  Serious: Yes (Death, Life-Threatening, Hospitalization, Other)
  Sender: FDA-Public Use
  Company Number: FR-ASTRAZENECA-2015SE29004

PATIENT
  Age: 3951 Week
  Sex: Female
  Weight: 68 kg

DRUGS (10)
  1. METFORMINE BIOGARAN [Suspect]
     Active Substance: METFORMIN HYDROCHLORIDE
     Dosage: NON ASTRAZENECA PRODUCT
     Route: 048
  2. BISOCE [Suspect]
     Active Substance: BISOPROLOL
     Route: 048
  3. LASILIX [Suspect]
     Active Substance: FUROSEMIDE
     Route: 048
  4. AMLODIPINE [Suspect]
     Active Substance: AMLODIPINE BESYLATE
     Route: 048
  5. DIFFU K [Concomitant]
     Active Substance: POTASSIUM CHLORIDE
  6. PREVISCAN [Suspect]
     Active Substance: FLUINDIONE
     Route: 048
  7. INEXIUM [Suspect]
     Active Substance: ESOMEPRAZOLE
     Route: 048
  8. SERETIDE [Concomitant]
     Active Substance: FLUTICASONE FUROATE\SALMETEROL XINAFOATE
  9. TAHOR [Suspect]
     Active Substance: ATORVASTATIN CALCIUM
     Route: 048
  10. DIAMICRON [Suspect]
     Active Substance: GLICLAZIDE
     Route: 048

REACTIONS (6)
  - Cardiac arrest [Fatal]
  - Haemoptysis [Unknown]
  - Mydriasis [Unknown]
  - Dyspnoea [Unknown]
  - Cardio-respiratory arrest [Fatal]
  - Loss of consciousness [Unknown]

NARRATIVE: CASE EVENT DATE: 20150311
